FAERS Safety Report 9473485 (Version 2)
Quarter: 2014Q3

REPORT INFORMATION
  Report Type: Spontaneous
  Country: US (occurrence: US)
  Receive Date: 20130823
  Receipt Date: 20140808
  Transmission Date: 20150326
  Serious: No
  Sender: FDA-Public Use
  Company Number: US-BRISTOL-MYERS SQUIBB COMPANY-19029081

PATIENT
  Age: 59 Year
  Sex: Female
  Weight: 82 kg

DRUGS (1)
  1. SPRYCEL [Suspect]
     Active Substance: DASATINIB
     Indication: CHRONIC MYELOID LEUKAEMIA
     Route: 048
     Dates: start: 201306

REACTIONS (4)
  - Dyspepsia [Unknown]
  - Dry eye [Unknown]
  - Fatigue [Unknown]
  - Cataract [Unknown]
